FAERS Safety Report 10264741 (Version 2)
Quarter: 2014Q2

REPORT INFORMATION
  Report Type: Spontaneous
  Country: US (occurrence: US)
  Receive Date: 20140627
  Receipt Date: 20140627
  Transmission Date: 20141212
  Serious: No
  Sender: FDA-Public Use
  Company Number: US-SHIRE-US201402305

PATIENT
  Age: 31 Year
  Sex: Female
  Weight: 80.3 kg

DRUGS (6)
  1. VPRIV [Suspect]
     Indication: GAUCHER^S DISEASE
     Dosage: 2800 UNITS, 1X/2WKS
     Route: 041
     Dates: start: 20100616
  2. VPRIV [Suspect]
     Dosage: 2800 UNITS, 1X/2WKS
     Route: 041
     Dates: start: 201304
  3. CALCIUM CARBONATE AND VITAMIN D [Concomitant]
     Indication: SUPPLEMENTATION THERAPY
     Dosage: 1 DF, 1X/DAY:QD
     Route: 048
  4. CLARITIN                           /00413701/ [Concomitant]
     Indication: ANTIALLERGIC THERAPY
     Dosage: 10 MG, 1X/2WKS, PRIOR TO INFUSION
     Route: 048
  5. CLARITIN                           /00413701/ [Concomitant]
     Indication: PROPHYLAXIS
  6. PRENATAL VITAMINS                  /07499601/ [Concomitant]
     Indication: SUPPLEMENTATION THERAPY
     Dosage: 1 DF, 1X/DAY:QD
     Route: 048

REACTIONS (1)
  - Exposure during pregnancy [Recovered/Resolved]
